FAERS Safety Report 9124003 (Version 1)
Quarter: 2013Q1

REPORT INFORMATION
  Report Type: Report from Study
  Country: GB (occurrence: GB)
  Receive Date: 20130227
  Receipt Date: 20130227
  Transmission Date: 20140127
  Serious: Yes (Hospitalization)
  Sender: FDA-Public Use
  Company Number: GB-JNJFOC-20130211856

PATIENT
  Age: 73 Year
  Sex: Female
  Weight: 43.3 kg

DRUGS (7)
  1. REMICADE [Suspect]
     Indication: PSORIASIS
     Route: 042
     Dates: start: 20110125, end: 20120823
  2. CO-DYDRAMOL [Concomitant]
     Dates: start: 20090101
  3. BENDROFLUAZIDE [Concomitant]
     Dates: start: 20060101
  4. FOLIC ACID [Concomitant]
     Dates: start: 20090101
  5. LANSOPRAZOLE [Concomitant]
     Dates: start: 20090101
  6. CALCIUM CARBONATE [Concomitant]
     Dates: start: 20080101
  7. LEVOTHYROXINE [Concomitant]
     Dates: start: 20040101

REACTIONS (1)
  - Erythrodermic psoriasis [Recovered/Resolved]
